FAERS Safety Report 23165739 (Version 1)
Quarter: 2023Q4

REPORT INFORMATION
  Report Type: Spontaneous
  Country: CN (occurrence: CN)
  Receive Date: 20231109
  Receipt Date: 20231109
  Transmission Date: 20240110
  Serious: Yes (Hospitalization)
  Sender: FDA-Public Use
  Company Number: CN-002147023-NVSC2023CN236956

PATIENT
  Age: 9 Year
  Sex: Male
  Weight: 34.4 kg

DRUGS (2)
  1. OXCARBAZEPINE [Suspect]
     Active Substance: OXCARBAZEPINE
     Indication: Occipital lobe epilepsy
     Dosage: 150 MG, BID
     Route: 048
     Dates: start: 20230606, end: 20230613
  2. OXCARBAZEPINE [Suspect]
     Active Substance: OXCARBAZEPINE
     Dosage: 300 UG, BID
     Route: 048
     Dates: start: 20230613, end: 20230620

REACTIONS (3)
  - Rash [Recovered/Resolved]
  - Arthralgia [Unknown]
  - Hypotension [Unknown]

NARRATIVE: CASE EVENT DATE: 20230619
